FAERS Safety Report 21669290 (Version 1)
Quarter: 2022Q4

REPORT INFORMATION
  Report Type: Spontaneous
  Country: US (occurrence: None)
  Receive Date: 20221201
  Receipt Date: 20221201
  Transmission Date: 20230113
  Serious: Yes (Hospitalization)
  Sender: FDA-Public Use
  Company Number: None

PATIENT
  Age: 70 Year
  Sex: Male
  Weight: 66.1 kg

DRUGS (2)
  1. AZACITIDINE [Suspect]
     Active Substance: AZACITIDINE
     Dates: end: 20221103
  2. VENETOCLAX [Suspect]
     Active Substance: VENETOCLAX
     Dates: end: 20221106

REACTIONS (8)
  - Asthenia [None]
  - Dizziness [None]
  - Faeces discoloured [None]
  - Haemoglobin decreased [None]
  - Platelet count decreased [None]
  - Blast cells present [None]
  - Gastrointestinal haemorrhage [None]
  - Disease progression [None]

NARRATIVE: CASE EVENT DATE: 20221129
